FAERS Safety Report 6357030-2 (Version None)
Quarter: 2009Q3

REPORT INFORMATION
  Report Type: 
  Country: None (occurrence: None)
  Receive Date: 20090915
  Receipt Date: 20090219
  Transmission Date: 20100115
  Serious: No
  Sender: FDA-Public Use
  Company Number: US-ABBOTT-09P-163-0558612-00

PATIENT
  Sex: Female
  Weight: 60.382 kg

DRUGS (5)
  1. DEPAKOTE [Suspect]
     Indication: BIPOLAR DISORDER
     Route: 048
     Dates: start: 20090122
  2. REMERON [Concomitant]
     Indication: BIPOLAR DISORDER
     Route: 048
  3. LASIX [Concomitant]
     Indication: OEDEMA
     Route: 048
  4. NEURONTIN [Concomitant]
     Indication: DIABETIC NEUROPATHY
     Route: 048
  5. NOVALOG INSULIN [Concomitant]
     Indication: TYPE 2 DIABETES MELLITUS
     Dosage: SLIDING SCALE

REACTIONS (2)
  - DRUG INEFFECTIVE [None]
  - MEDICATION RESIDUE [None]
